FAERS Safety Report 6358923-2 (Version None)
Quarter: 2009Q3

REPORT INFORMATION
  Report Type: 
  Country: None (occurrence: None)
  Receive Date: 20090914
  Receipt Date: 20090831
  Transmission Date: 20100115
  Serious: Yes (Other)
  Sender: FDA-Public Use
  Company Number: CHPA2009US18054

PATIENT
  Age: 78 Year
  Sex: Male
  Weight: 75.7 kg

DRUGS (7)
  1. BENEFIBER W/WHEAT DEXTRIN (NCH) (WHEAT DEXTRIN) POWDER [Suspect]
     Indication: CONSTIPATION
     Dosage: 4 TSP AT ONCE, 2-3 TIMES EACH DAY, ORAL, 1 TSP ONCE OR TWICE DAILY, ORAL
     Route: 048
     Dates: start: 20070101, end: 20090828
  2. BENEFIBER W/WHEAT DEXTRIN (NCH) (WHEAT DEXTRIN) POWDER [Suspect]
     Indication: CONSTIPATION
     Dosage: 4 TSP AT ONCE, 2-3 TIMES EACH DAY, ORAL, 1 TSP ONCE OR TWICE DAILY, ORAL
     Route: 048
     Dates: start: 20090829
  3. XANAX [Concomitant]
  4. LEXAPRO [Concomitant]
  5. PRISTIQ (DESVENLAFAXINE SUCCINATE) [Concomitant]
  6. ZOCOR [Concomitant]
  7. TEGRETOL [Concomitant]

REACTIONS (8)
  - ANXIETY [None]
  - ASTHENIA [None]
  - DECREASED APPETITE [None]
  - DEPRESSION [None]
  - DRUG INEFFECTIVE [None]
  - FATIGUE [None]
  - OVERDOSE [None]
  - WEIGHT DECREASED [None]
